FAERS Safety Report 5491394-7 (Version None)
Quarter: 2007Q4

REPORT INFORMATION
  Report Type: 
  Country: None (occurrence: None)
  Receive Date: 20071018
  Receipt Date: 20071011
  Transmission Date: 20080405
  Serious: Yes (Hospitalization, Other)
  Sender: FDA-Public Use
  Company Number: PRA2-2007-00003

PATIENT
  Age: 67 Year
  Sex: Male
  Weight: 85.5 kg

DRUGS (29)
  1. 405  (LANTHANUUM CARBONATE) [Suspect]
     Indication: HYPERPHOSPHATAEMIA
     Dosage: 750 MG, 3X/DAY:TID, ORAL
     Route: 048
     Dates: start: 20070827, end: 20070829
  2. LACTULOSE [Concomitant]
  3. ACETYLSALICYLIC ACID SRT [Concomitant]
  4. CLOPIDOGREL [Concomitant]
  5. FLUVASTATIN [Concomitant]
  6. OMEPRAZOL              /00661201/ (OMPERAZOLE) [Concomitant]
  7. ESOMEPRAZOLE        (ESOMEPRAZOLE) [Concomitant]
  8. ZOPICLON 7.5         (ZOPILCONE) [Concomitant]
  9. L-CARITHINE  (LEVOCARNITINE) [Concomitant]
  10. TILDIN COMP            (NALOXONE HYDROCHLORIDE, TILIDINE HYDROCHLORIDE [Concomitant]
  11. PENTAERYTHRITOL TETRANITRATE     (PENTAERITHRITYL TETRANITRATE) [Concomitant]
  12. ERYTHROPOIETIN        (ERYTHROPOIETIN) [Concomitant]
  13. MOXONIDINE          (MOXONIDINE) [Concomitant]
  14. FERRLECIT                        (FERRIC SODIUM GLUCONATE COMPLEX) [Concomitant]
  15. XIPAMID       (XIPAMIDE) [Concomitant]
  16. BISOPROLOL FUMARATE [Concomitant]
  17. NATRIUMHYDROCARBONATE                 (SODIUM BICARBONATE) [Concomitant]
  18. DIHYDRALAZIN          (DIHYDRALAZINE SULFATE) [Concomitant]
  19. TELMISARTAN       (TELMISARTAN) [Concomitant]
  20. TORASEMID              (TORASEMIDE) [Concomitant]
  21. INSULIN HUMAN         (INSULIN HUMAN) [Concomitant]
  22. LEVEMIR        (INSULIN DETERMIR) [Concomitant]
  23. GABAPENTIN [Concomitant]
  24. TAMSULOSIN HCL [Concomitant]
  25. VIANI             (FLUTICASONE PROPIONATE, SALMETEROL XINAFOATE) [Concomitant]
  26. SALBUTAMOL         (SALBUTAMOL) [Concomitant]
  27. PENTAERYTHIRITOL TETRANITRATE TAB [Concomitant]
  28. UROXATRAL [Concomitant]
  29. MOVICOL /01053601/ (MACROGOL, POTASSIUM CHLORIDE, SODIUM BICARBONATE, [Concomitant]

REACTIONS (10)
  - BRADYCARDIA [None]
  - BUNDLE BRANCH BLOCK LEFT [None]
  - CHOLELITHIASIS [None]
  - CONDITION AGGRAVATED [None]
  - DISEASE PROGRESSION [None]
  - ELECTROCARDIOGRAM ABNORMAL [None]
  - GASTRITIS [None]
  - GENERAL PHYSICAL HEALTH DETERIORATION [None]
  - MUSCLE SPASMS [None]
  - REGURGITATION [None]
